FAERS Safety Report 8620190-4 (Version None)
Quarter: 2012Q3

REPORT INFORMATION
  Report Type: 
  Country: None (occurrence: None)
  Receive Date: 20120824
  Receipt Date: 20120817
  Transmission Date: 20120928
  Serious: Yes (Hospitalization)
  Sender: FDA-Public Use
  Company Number: PHHO2012DE012084

PATIENT
  Sex: Male
  Weight: 48 kg

DRUGS (10)
  1. GRANISETRON [Suspect]
     Dosage: 3 MG, PER DAY
     Route: 042
     Dates: start: 20120808, end: 20120811
  2. SULFAMETHOXAZOLE AND TRIMETHOPRIM [Suspect]
     Dosage: 2X120MG EVERY SAT, SUN AND MON
     Route: 048
  3. CYTARABINE [Suspect]
     Dosage: 110 MG, PER DAY
     Route: 042
     Dates: start: 20120808, end: 20120811
  4. FUROSEMIDE [Suspect]
     Dosage: 2X10MG/D
     Dates: start: 20120809, end: 20120811
  5. IMATINIB MESYLATE [Suspect]
     Indication: ACUTE LYMPHOCYTIC LEUKAEMIA
     Dosage: 450 MG, PER DAY
     Route: 048
     Dates: start: 20120713
  6. GRANISETRON [Suspect]
     Dosage: 3 MG, PER DAY
     Route: 042
     Dates: start: 20120816
  7. MERCAPTOPURINE [Suspect]
     Dosage: 1X87.5MG/D AVERAGE
     Route: 048
     Dates: start: 20120806
  8. CYTARABINE [Suspect]
     Dosage: 110 MG, PER DAY
     Route: 042
     Dates: start: 20120816
  9. AMPHOTERICIN B [Suspect]
     Dosage: 6X60 MG/D
     Route: 048
     Dates: start: 20120624
  10. PANTOPRAZOLE [Suspect]
     Dosage: 40 MG, PER DAY
     Route: 048
     Dates: start: 20120624, end: 20120815

REACTIONS (1)
  - MEMORY IMPAIRMENT [None]
